FAERS Safety Report 21871923 (Version 9)
Quarter: 2024Q4

REPORT INFORMATION
  Report Type: Spontaneous
  Country: US (occurrence: US)
  Receive Date: 20230117
  Receipt Date: 20241219
  Transmission Date: 20250114
  Serious: Yes (Other)
  Sender: PFIZER
  Company Number: US-PFIZER INC-PV202300006940

PATIENT
  Age: 80 Year
  Sex: Female
  Weight: 54.7 kg

DRUGS (4)
  1. IBRANCE [Suspect]
     Active Substance: PALBOCICLIB
     Indication: Breast cancer metastatic
     Dosage: 125 MG, CYCLIC ( THREE WEEKS ON, FOLLOWED BY ONE WEEK OFF)
     Route: 048
     Dates: start: 20220601, end: 20221104
  2. IBRANCE [Suspect]
     Active Substance: PALBOCICLIB
     Dosage: 100 MG, CYCLIC (1-21 Q28 DAYS)
     Route: 048
     Dates: start: 20221123
  3. IBRANCE [Suspect]
     Active Substance: PALBOCICLIB
     Dosage: 75 MG, CYCLIC (1-21 Q28 DAYS)
     Route: 048
     Dates: start: 20241017
  4. IBRANCE [Suspect]
     Active Substance: PALBOCICLIB
     Dosage: 75MG TABLETS, 21 DAYS ON, 7 DAYS OFF

REACTIONS (4)
  - Pancytopenia [Not Recovered/Not Resolved]
  - Hypoacusis [Unknown]
  - Gastrooesophageal reflux disease [Unknown]
  - Cough [Unknown]

NARRATIVE: CASE EVENT DATE: 20221101
